FAERS Safety Report 25509395 (Version 1)
Quarter: 2025Q3

REPORT INFORMATION
  Report Type: Spontaneous
  Country: US (occurrence: US)
  Receive Date: 20250703
  Receipt Date: 20250703
  Transmission Date: 20251021
  Serious: Yes (Hospitalization)
  Sender: BIOGEN
  Company Number: US-BIOGEN-2025BI01315683

PATIENT
  Sex: Female

DRUGS (1)
  1. VUMERITY [Suspect]
     Active Substance: DIROXIMEL FUMARATE
     Indication: Multiple sclerosis
     Route: 050
     Dates: start: 20250509, end: 20250620

REACTIONS (4)
  - Hypotension [Unknown]
  - Gastric haemorrhage [Unknown]
  - Gastrointestinal disorder [Unknown]
  - Barrett^s oesophagus [Unknown]
